FAERS Safety Report 5636059-3 (Version None)
Quarter: 2008Q1

REPORT INFORMATION
  Report Type: 
  Country: None (occurrence: None)
  Receive Date: 20080220
  Receipt Date: 20080220
  Transmission Date: 20080703
  Serious: Yes (Life-Threatening, Hospitalization, Disabling)
  Sender: FDA-Public Use
  Company Number: None

PATIENT
  Age: 43 Year
  Sex: Male
  Weight: 72.5755 kg

DRUGS (1)
  1. CELEBREX [Suspect]
     Indication: BACK INJURY
     Dosage: 200MG B.I.D. PO
     Route: 048
     Dates: start: 20040706, end: 20040707

REACTIONS (2)
  - CARDIAC ARREST [None]
  - MYOCARDIAL INFARCTION [None]
